FAERS Safety Report 5797010-9 (Version None)
Quarter: 2008Q3

REPORT INFORMATION
  Report Type: 
  Country: None (occurrence: None)
  Receive Date: 20080701
  Receipt Date: 20080625
  Transmission Date: 20090109
  Serious: Yes (Other)
  Sender: FDA-Public Use
  Company Number: US-BAYER-200822081NA

PATIENT
  Sex: Female

DRUGS (3)
  1. AVELOX [Suspect]
     Indication: SKIN INFECTION
     Route: 048
     Dates: start: 20080428
  2. DOXYCYCLINE HCL [Concomitant]
     Dosage: TOTAL DAILY DOSE: 200 MG
     Route: 048
     Dates: start: 20080420
  3. AMBIEN [Concomitant]
     Indication: INSOMNIA
     Dates: start: 20080427

REACTIONS (7)
  - ANAPHYLACTIC REACTION [None]
  - HEART RATE INCREASED [None]
  - OCULAR HYPERAEMIA [None]
  - OROPHARYNGEAL PAIN [None]
  - PRURITUS [None]
  - RESPIRATORY RATE INCREASED [None]
  - URTICARIA [None]
